FAERS Safety Report 15402986 (Version 2)
Quarter: 2018Q3

REPORT INFORMATION
  Report Type: Spontaneous
  Country: US (occurrence: US)
  Receive Date: 20180919
  Receipt Date: 20180921
  Transmission Date: 20181010
  Serious: Yes (Death)
  Sender: FDA-Public Use
  Company Number: US-VIFOR (INTERNATIONAL) INC.-VIT-2018-09159

PATIENT
  Sex: Male

DRUGS (1)
  1. VELPHORO [Suspect]
     Active Substance: FERRIC OXYHYDROXIDE
     Indication: PHOSPHORUS METABOLISM DISORDER
     Dosage: 2 TABLETS OF 500 MG THREE TIMES A DAY
     Route: 048
     Dates: start: 201808, end: 20180911

REACTIONS (1)
  - Death [Fatal]

NARRATIVE: CASE EVENT DATE: 20180911
